FAERS Safety Report 8020651-5 (Version None)
Quarter: 2012Q1

REPORT INFORMATION
  Report Type: 
  Country: None (occurrence: None)
  Receive Date: 20120103
  Receipt Date: 20110824
  Transmission Date: 20120608
  Serious: Yes (Hospitalization)
  Sender: FDA-Public Use
  Company Number: AU-AMGEN-AUSCT2011033323

PATIENT
  Age: 71 Year
  Sex: Male

DRUGS (24)
  1. ACETAMINOPHEN [Concomitant]
     Dosage: 1 G, QID
  2. CEFTRIAXONE [Concomitant]
     Dosage: 1 G, ONE TIME DOSE
     Route: 042
     Dates: start: 20110513, end: 20110513
  3. MAGMIN [Concomitant]
     Dosage: UNK UNK, TID
     Route: 048
     Dates: start: 20110513
  4. LORATADINE [Concomitant]
     Dosage: 10 MG, UNK
  5. LORAZEPAM [Concomitant]
     Dosage: 0.5 MG, UNK
  6. PANITUMUMAB [Suspect]
     Indication: OESOPHAGEAL ADENOCARCINOMA
     Dosage: 592 MG, Q3WK
     Route: 042
     Dates: start: 20110111, end: 20110524
  7. DOCETAXEL [Concomitant]
     Indication: OESOPHAGEAL ADENOCARCINOMA
     Dosage: 51 MG, UNK
     Route: 042
     Dates: start: 20110111, end: 20110524
  8. PROCHLORPERAZINE [Concomitant]
     Dosage: 5 MG, PRN
  9. METOCLOPRAMIDE [Concomitant]
     Dosage: 10 MG, UNK
     Route: 048
     Dates: start: 20110120
  10. CIPROFLOXACIN [Concomitant]
     Dosage: 500 MG, BID
     Route: 048
     Dates: start: 20110519, end: 20110602
  11. SORBOLENE [Concomitant]
     Dosage: UNK UNK, BID
     Route: 061
     Dates: start: 20110208
  12. CISPLATIN [Concomitant]
     Indication: OESOPHAGEAL ADENOCARCINOMA
     Dosage: 103 MG, Q3WK
     Route: 042
     Dates: start: 20110111, end: 20110524
  13. ENOXAPARIN SODIUM [Concomitant]
     Dosage: 60 MG, BID
     Route: 058
     Dates: start: 20110329
  14. AMPICILLIN [Concomitant]
     Dosage: 1 G, TID
     Route: 042
     Dates: start: 20110514, end: 20110515
  15. DOXYCYCLINE [Concomitant]
     Dosage: 50 MG, QD
     Route: 048
     Dates: start: 20110117, end: 20110513
  16. VANCOMYCIN [Concomitant]
     Dosage: 1 G, ONE TIME DOSE
     Route: 042
     Dates: start: 20110513, end: 20110513
  17. COLOXYL WITH SENNA [Concomitant]
     Dosage: UNK UNK, PRN
     Route: 048
     Dates: start: 20110208
  18. HYDROCORTISONE [Concomitant]
     Dosage: UNK UNK, BID
     Route: 061
  19. OXYCODONE HCL [Concomitant]
     Dosage: 5 MG, PRN
     Route: 048
     Dates: start: 20101230
  20. GENTAMICIN [Concomitant]
     Dosage: 240 MG, QD
     Route: 042
     Dates: start: 20110515, end: 20110519
  21. FLUOROURACIL [Concomitant]
     Indication: OESOPHAGEAL ADENOCARCINOMA
     Dosage: 247 MG, Q3WK
     Route: 042
     Dates: start: 20110111, end: 20110524
  22. DEXAMETHASONE [Concomitant]
     Dosage: UNK UNK, QD
     Route: 048
     Dates: start: 20110503, end: 20110628
  23. PIPERACILLIN AND TAZOBACTAM [Concomitant]
     Dosage: 4.5 G, ONE TIME DOSE
     Dates: start: 20110513, end: 20110513
  24. NEXIUM [Concomitant]
     Dosage: 20 MG, QD
     Route: 048
     Dates: start: 20110514, end: 20110519

REACTIONS (1)
  - DYSPHAGIA [None]
